FAERS Safety Report 7377020-0 (Version None)
Quarter: 2011Q1

REPORT INFORMATION
  Report Type: 
  Country: None (occurrence: None)
  Receive Date: 20110328
  Receipt Date: 20110207
  Transmission Date: 20110831
  Serious: Yes (Other)
  Sender: FDA-Public Use
  Company Number: US-BIOGENIDEC-2010BI043846

PATIENT
  Age: 51 Year
  Sex: Male

DRUGS (1)
  1. TYSABRI [Suspect]
     Indication: MULTIPLE SCLEROSIS
     Route: 042
     Dates: start: 20100910

REACTIONS (6)
  - NASOPHARYNGITIS [None]
  - FATIGUE [None]
  - MUSCLE TIGHTNESS [None]
  - TREMOR [None]
  - MUSCULOSKELETAL DISORDER [None]
  - MUSCLE SPASTICITY [None]
